FAERS Safety Report 10455030 (Version 1)
Quarter: 2014Q3

REPORT INFORMATION
  Report Type: Spontaneous
  Country: IT (occurrence: IT)
  Receive Date: 20140915
  Receipt Date: 20140915
  Transmission Date: 20150326
  Serious: Yes (Death, Other)
  Sender: FDA-Public Use
  Company Number: PHHY2014IT117283

PATIENT
  Age: 67 Year
  Sex: Male

DRUGS (9)
  1. DEXAMETHASONE. [Suspect]
     Active Substance: DEXAMETHASONE
     Indication: CARDIAC AMYLOIDOSIS
     Dosage: 20 MG, PER DAY FOR 4 DAYS EVERY 28 DAYS
  2. DEXAMETHASONE. [Suspect]
     Active Substance: DEXAMETHASONE
     Dates: start: 200810
  3. THALIDOMIDE [Suspect]
     Active Substance: THALIDOMIDE
     Indication: CARDIAC AMYLOIDOSIS
     Dosage: 200 MG, PER DAY
     Dates: start: 200509
  4. DEXAMETHASONE. [Suspect]
     Active Substance: DEXAMETHASONE
     Indication: CARDIAC AMYLOIDOSIS
     Dosage: 40 MG, FOR 4 DAYS/MONTHLY
     Dates: start: 200507, end: 200512
  5. BORTEZOMIB [Suspect]
     Active Substance: BORTEZOMIB
     Indication: CARDIAC AMYLOIDOSIS
     Dosage: 1.3 MG/M2, UNK
     Route: 042
  6. BORTEZOMIB [Suspect]
     Active Substance: BORTEZOMIB
     Dates: start: 200810
  7. MELPHALAN [Suspect]
     Active Substance: MELPHALAN
     Indication: CARDIAC AMYLOIDOSIS
     Dosage: 16 MG, UNK
     Dates: start: 200502
  8. MELPHALAN [Suspect]
     Active Substance: MELPHALAN
     Dosage: 12 MG, PER DAY
  9. PREDNISONE. [Concomitant]
     Active Substance: PREDNISONE
     Indication: CARDIAC AMYLOIDOSIS
     Dosage: 74 MG, FOR 7 DAYS EVERY 6 WEEKS
     Dates: start: 200502

REACTIONS (5)
  - Interstitial lung disease [Fatal]
  - Hypotension [Unknown]
  - Drug ineffective [Unknown]
  - Respiratory failure [Unknown]
  - Lactic acidosis [Unknown]
